FAERS Safety Report 5715588-8 (Version None)
Quarter: 2008Q2

REPORT INFORMATION
  Report Type: 
  Country: None (occurrence: None)
  Receive Date: 20080423
  Receipt Date: 20080423
  Transmission Date: 20081010
  Serious: No
  Sender: FDA-Public Use
  Company Number: None

PATIENT
  Sex: Female
  Weight: 43.5453 kg

DRUGS (2)
  1. SINEMET [Suspect]
     Indication: PARKINSON'S DISEASE
     Dosage: 25/100 ONCE PO Q HR PRN UP TO 20 TABS/DAILY
  2. SINEMET CR [Suspect]
     Dosage: 25/100 ONCE PO @ HS
     Route: 048

REACTIONS (1)
  - TREATMENT FAILURE [None]
